FAERS Safety Report 4660734-0 (Version None)
Quarter: 2005Q2

REPORT INFORMATION
  Report Type: 
  Country: None (occurrence: None)
  Receive Date: 20050511
  Receipt Date: 20050427
  Transmission Date: 20051028
  Serious: Yes (Other)
  Sender: FDA-Public Use
  Company Number: 2005BI000203

PATIENT
  Age: 60 Year
  Sex: Female
  Weight: 52.1637 kg

DRUGS (7)
  1. AVONEX [Suspect]
     Indication: MULTIPLE SCLEROSIS
     Dosage: 30 UG; QW; IM
     Route: 030
     Dates: start: 19970101, end: 20030101
  2. AVONEX [Suspect]
     Indication: MULTIPLE SCLEROSIS
     Dosage: 22.5 UG;QW;IM
     Route: 030
     Dates: start: 20030101
  3. BELLAMINE [Concomitant]
  4. LAMISIL [Concomitant]
  5. CEPHALEXIN [Concomitant]
  6. LACTULOSE [Concomitant]
  7. ZELNORM [Concomitant]

REACTIONS (2)
  - INFLUENZA LIKE ILLNESS [None]
  - SQUAMOUS CELL CARCINOMA OF SKIN [None]
